FAERS Safety Report 18961665 (Version 3)
Quarter: 2021Q1

REPORT INFORMATION
  Report Type: Spontaneous
  Country: PT (occurrence: PT)
  Receive Date: 20210302
  Receipt Date: 20210316
  Transmission Date: 20210420
  Serious: Yes (Hospitalization)
  Sender: FDA-Public Use
  Company Number: PT-GILEAD-2021-0519365

PATIENT
  Age: 75 Year
  Sex: Male

DRUGS (8)
  1. ENOXAPARIN SODIUM. [Concomitant]
     Active Substance: ENOXAPARIN SODIUM
     Dates: start: 20210206
  2. VEKLURY [Suspect]
     Active Substance: REMDESIVIR
     Indication: COVID-19 PNEUMONIA
     Dosage: 200 MG NO D1, SEGUIDO DE 100 MG DE D2?D5
     Route: 042
     Dates: start: 20210204, end: 20210207
  3. OMEPRAZOLE. [Concomitant]
     Active Substance: OMEPRAZOLE
  4. PHYTOMENADIONE [Concomitant]
     Active Substance: PHYTONADIONE
     Dates: start: 20210206
  5. PARACETAMOL [Concomitant]
     Active Substance: ACETAMINOPHEN
     Dosage: SOS
     Dates: start: 20210204
  6. REMIFENTANIL [Concomitant]
     Active Substance: REMIFENTANIL
     Dates: start: 20210206
  7. DEXAMETHASONE. [Concomitant]
     Active Substance: DEXAMETHASONE
     Dates: start: 20210204
  8. ROCURONIUM BROMIDE. [Concomitant]
     Active Substance: ROCURONIUM BROMIDE

REACTIONS (1)
  - Liver disorder [Recovered/Resolved]

NARRATIVE: CASE EVENT DATE: 20210207
